FAERS Safety Report 8026043-7 (Version None)
Quarter: 2012Q1

REPORT INFORMATION
  Report Type: 
  Country: None (occurrence: None)
  Receive Date: 20120105
  Receipt Date: 20110511
  Transmission Date: 20120608
  Serious: No
  Sender: FDA-Public Use
  Company Number: US-ABBOTT-11P-163-0725821-00

PATIENT
  Sex: Female

DRUGS (3)
  1. SYNTHROID [Suspect]
     Route: 048
     Dates: start: 20090401
  2. SYNTHROID [Suspect]
     Indication: HYPOTHYROIDISM
     Route: 048
     Dates: start: 19930101, end: 20090101
  3. MULTI-VITAMINS [Concomitant]
     Indication: PREGNANCY
     Route: 048

REACTIONS (1)
  - AMNIOTIC FLUID VOLUME DECREASED [None]
